FAERS Safety Report 6377946-0 (Version None)
Quarter: 2009Q3

REPORT INFORMATION
  Report Type: 
  Country: None (occurrence: None)
  Receive Date: 20090925
  Receipt Date: 20090918
  Transmission Date: 20100115
  Serious: Yes (Hospitalization)
  Sender: FDA-Public Use
  Company Number: PHHO2009SK09981

PATIENT
  Sex: Male
  Weight: 65 kg

DRUGS (4)
  1. ALISKIREN ALI+TAB [Suspect]
     Indication: ACUTE MYOCARDIAL INFARCTION
     Dosage: 300 MG, UNK
     Route: 048
     Dates: start: 20090209, end: 20090809
  2. TRITACE [Concomitant]
     Dosage: UNK UG, UNK
     Route: 048
     Dates: end: 20090810
  3. ATORVASTATIN CALCIUM [Concomitant]
     Dosage: UNK
  4. ANOPYRIN [Concomitant]
     Dosage: UNK

REACTIONS (8)
  - BRADYCARDIA [None]
  - DEHYDRATION [None]
  - FATIGUE [None]
  - HUNGER [None]
  - HYPOGLYCAEMIA [None]
  - HYPOTENSION [None]
  - SYNCOPE [None]
  - THIRST [None]
